FAERS Safety Report 21132472 (Version 1)
Quarter: 2022Q3

REPORT INFORMATION
  Report Type: Spontaneous
  Country: JP (occurrence: JP)
  Receive Date: 20220726
  Receipt Date: 20220726
  Transmission Date: 20221027
  Serious: Yes (Other)
  Sender: FDA-Public Use
  Company Number: JP-PFIZER INC-PV202200027925

PATIENT
  Age: 52 Year
  Sex: Female

DRUGS (1)
  1. PAXLOVID [Suspect]
     Active Substance: NIRMATRELVIR\RITONAVIR
     Indication: COVID-19 treatment
     Dosage: UNK
     Route: 048
     Dates: start: 20220713, end: 20220717

REACTIONS (4)
  - Conjunctival haemorrhage [Unknown]
  - Dysgeusia [Unknown]
  - Ocular hyperaemia [Recovered/Resolved]
  - Limb discomfort [Recovering/Resolving]

NARRATIVE: CASE EVENT DATE: 20220713
